FAERS Safety Report 4355053-6 (Version None)
Quarter: 2004Q2

REPORT INFORMATION
  Report Type: 
  Country: None (occurrence: None)
  Receive Date: 20040504
  Receipt Date: 20040426
  Transmission Date: 20050107
  Serious: Yes (Other)
  Sender: FDA-Public Use
  Company Number: 200411221BCC

PATIENT
  Age: 74 Year
  Sex: Male
  Weight: 95.2554 kg

DRUGS (5)
  1. ALEVE [Suspect]
     Dosage: 220 MG, BID, ORAL; SEE IMAGE
     Route: 048
     Dates: start: 20040304
  2. ALEVE [Suspect]
     Dosage: 220 MG, BID, ORAL; SEE IMAGE
     Route: 048
     Dates: start: 20040305
  3. ENAPRIL [Concomitant]
  4. DYAZIDE [Concomitant]
  5. HYDROCHLOROTHIAZIDE [Concomitant]

REACTIONS (1)
  - BLOOD PRESSURE INCREASED [None]
